FAERS Safety Report 4876782-1 (Version None)
Quarter: 2005Q4

REPORT INFORMATION
  Report Type: 
  Country: None (occurrence: None)
  Receive Date: 20051206
  Receipt Date: 20051011
  Transmission Date: 20060501
  Serious: No
  Sender: FDA-Public Use
  Company Number: USA0508106499

PATIENT
  Age: 50 Year
  Sex: Female
  Weight: 64 kg

DRUGS (10)
  1. CYMBALTA [Suspect]
     Indication: DEPRESSION
     Dosage: 60 MG DAY
     Dates: start: 20050201, end: 20050801
  2. VALIUM [Concomitant]
  3. ESTRADIOL INJ [Concomitant]
  4. AMITRIPTYLINE HCL [Concomitant]
  5. FLEXERIL [Concomitant]
  6. RESTORIL [Concomitant]
  7. PROMETRIUM [Concomitant]
  8. ACETAMINOPHEN [Concomitant]
  9. VITAMIN D [Concomitant]
  10. DHEA [Concomitant]

REACTIONS (1)
  - WHITE BLOOD CELL COUNT DECREASED [None]
